FAERS Safety Report 7414419-8 (Version None)
Quarter: 2011Q2

REPORT INFORMATION
  Report Type: 
  Country: None (occurrence: None)
  Receive Date: 20110414
  Receipt Date: 20110321
  Transmission Date: 20111010
  Serious: Yes (Hospitalization)
  Sender: FDA-Public Use
  Company Number: US-BAYER-2010-002227

PATIENT
  Age: 32 Year
  Sex: Female
  Weight: 77.098 kg

DRUGS (9)
  1. PLAVIX [Concomitant]
     Dosage: 75 MG, UNK
     Dates: start: 20080601
  2. LISINOPRIL [Concomitant]
     Dosage: 2.5 MG, UNK
     Dates: start: 20080601
  3. YASMIN [Suspect]
     Indication: PRODUCT USED FOR UNKNOWN INDICATION
     Dosage: UNK
     Dates: start: 20050831, end: 20070831
  4. OCELLA [Suspect]
     Dosage: UNK
     Dates: start: 20050831, end: 20070831
  5. ALLEGRA [Concomitant]
     Dosage: 180 MG, UNK
     Dates: start: 20080601
  6. BACTRIM [Concomitant]
     Indication: HIDRADENITIS
     Dosage: 100 MG, UNK
     Dates: start: 20050101
  7. LORTAB [Concomitant]
     Dosage: 7.5/500 MG
     Dates: start: 20080601
  8. CYMBALTA [Concomitant]
     Dosage: 30 MG, UNK
     Dates: start: 20071101, end: 20091201
  9. TRAMADOL [Concomitant]
     Dosage: 50 MG, UNK
     Dates: start: 20080601

REACTIONS (2)
  - MYOCARDIAL INFARCTION [None]
  - CARDIAC DISORDER [None]
